FAERS Safety Report 14544372 (Version 1)
Quarter: 2018Q1

REPORT INFORMATION
  Report Type: Spontaneous
  Country: US (occurrence: US)
  Receive Date: 20180215
  Receipt Date: 20180215
  Transmission Date: 20180509
  Serious: Yes (Life-Threatening, Hospitalization)
  Sender: FDA-Public Use
  Company Number: None

PATIENT
  Age: 18 Year
  Sex: Female

DRUGS (5)
  1. ISENTRESS [Concomitant]
     Active Substance: RALTEGRAVIR POTASSIUM
     Route: 048
  2. LITHIUM. [Concomitant]
     Active Substance: LITHIUM
  3. ZOLOFT [Concomitant]
     Active Substance: SERTRALINE HYDROCHLORIDE
  4. TRUVADA [Suspect]
     Active Substance: EMTRICITABINE\TENOFOVIR DISOPROXIL FUMARATE
     Indication: PROPHYLAXIS AGAINST HIV INFECTION
     Dosage: ?          QUANTITY:^9 0?, 02/02/2010?00?).;?
     Route: 048
     Dates: start: 20180202, end: 20180202
  5. PRAZOSIN. [Concomitant]
     Active Substance: PRAZOSIN

REACTIONS (2)
  - Anaphylactic reaction [None]
  - Adverse drug reaction [None]

NARRATIVE: CASE EVENT DATE: 20180202
